FAERS Safety Report 10109898 (Version 1)
Quarter: 2014Q2

REPORT INFORMATION
  Report Type: Report from Study
  Country: US (occurrence: US)
  Receive Date: 20140425
  Receipt Date: 20140425
  Transmission Date: 20141212
  Serious: Yes (Other)
  Sender: FDA-Public Use
  Company Number: US-MYLANLABS-2014S1008902

PATIENT
  Age: 8 Year
  Sex: 0

DRUGS (6)
  1. IRINOTECAN [Suspect]
     Indication: OPTIC GLIOMA
     Route: 065
  2. IRINOTECAN [Suspect]
     Indication: OFF LABEL USE
     Route: 065
  3. IRINOTECAN [Suspect]
     Indication: OPTIC GLIOMA
     Route: 065
  4. IRINOTECAN [Suspect]
     Indication: OFF LABEL USE
     Route: 065
  5. BEVACIZUMAB [Suspect]
     Indication: OPTIC GLIOMA
     Route: 065
  6. BEVACIZUMAB [Suspect]
     Indication: OPTIC GLIOMA
     Dosage: THEN 10 MG/KG EVERY 2 WEEKS
     Route: 065

REACTIONS (3)
  - Posterior reversible encephalopathy syndrome [Recovered/Resolved]
  - Fatigue [Unknown]
  - Gastrointestinal toxicity [Unknown]
